FAERS Safety Report 15279667 (Version 1)
Quarter: 2018Q3

REPORT INFORMATION
  Report Type: Spontaneous
  Country: US (occurrence: US)
  Receive Date: 20180815
  Receipt Date: 20180815
  Transmission Date: 20181010
  Serious: No
  Sender: FDA-Public Use
  Company Number: US-PFIZER INC-2018329004

PATIENT
  Age: 64 Year
  Sex: Female
  Weight: 64 kg

DRUGS (4)
  1. LORAZEPAM. [Concomitant]
     Active Substance: LORAZEPAM
     Indication: ANXIETY
     Dosage: 2 MG, 1X/DAY, AT NIGHT
     Route: 048
  2. LORAZEPAM. [Concomitant]
     Active Substance: LORAZEPAM
     Indication: SLEEP DISORDER
  3. LYRICA [Suspect]
     Active Substance: PREGABALIN
     Indication: NEUROPATHY PERIPHERAL
     Dosage: 50 MG, UNK
     Dates: start: 2017, end: 2017
  4. LYRICA [Suspect]
     Active Substance: PREGABALIN
     Dosage: 75 MG, 2X/DAY
     Route: 048
     Dates: start: 2017

REACTIONS (1)
  - Drug effect incomplete [Not Recovered/Not Resolved]

NARRATIVE: CASE EVENT DATE: 2017
